FAERS Safety Report 9570097 (Version 2)
Quarter: 2013Q3

REPORT INFORMATION
  Report Type: Spontaneous
  Country: US (occurrence: US)
  Receive Date: 20130930
  Receipt Date: 20130930
  Transmission Date: 20140515
  Serious: No
  Sender: FDA-Public Use
  Company Number: US-AMGEN-USASP2013004665

PATIENT
  Age: 59 Year
  Sex: Male
  Weight: 126.98 kg

DRUGS (4)
  1. ENBREL [Suspect]
     Indication: ANKYLOSING SPONDYLITIS
     Dosage: 50 MG, QWK
     Route: 058
     Dates: start: 20121221, end: 201306
  2. VOLTAREN                           /00372301/ [Concomitant]
     Dosage: 25 MG, UNK
     Route: 048
  3. INDOMETHACIN                       /00003801/ [Concomitant]
     Dosage: 50 QD/BID
     Route: 048
  4. DICLOFENAC [Concomitant]
     Dosage: 75 MG, BID
     Route: 048

REACTIONS (2)
  - Ankylosing spondylitis [Unknown]
  - Drug ineffective [Unknown]
